FAERS Safety Report 9645145 (Version 5)
Quarter: 2013Q4

REPORT INFORMATION
  Report Type: Spontaneous
  Country: US (occurrence: US)
  Receive Date: 20131025
  Receipt Date: 20131115
  Transmission Date: 20140711
  Serious: Yes (Other)
  Sender: FDA-Public Use
  Company Number: US-JNJFOC-20131009717

PATIENT
  Age: 7 Decade
  Sex: Male

DRUGS (1)
  1. XARELTO [Suspect]
     Indication: PRODUCT USED FOR UNKNOWN INDICATION
     Route: 048

REACTIONS (5)
  - Haemorrhage [Unknown]
  - Haemoglobin decreased [Unknown]
  - Compartment syndrome [Unknown]
  - Hypoaesthesia [Unknown]
  - Paraesthesia [Unknown]
